FAERS Safety Report 19665975 (Version 1)
Quarter: 2021Q3

REPORT INFORMATION
  Report Type: Spontaneous
  Country: HU (occurrence: HU)
  Receive Date: 20210806
  Receipt Date: 20210806
  Transmission Date: 20211014
  Serious: Yes (Death)
  Sender: FDA-Public Use
  Company Number: HU-TOPROL-2021000156

PATIENT
  Sex: Male

DRUGS (10)
  1. BETALOC ZOK [Suspect]
     Active Substance: METOPROLOL SUCCINATE
     Dosage: UNKNOWN
     Route: 065
  2. ZOCOR [Suspect]
     Active Substance: SIMVASTATIN
     Route: 065
  3. SYNCUMAR [Suspect]
     Active Substance: ACENOCOUMAROL
     Route: 065
  4. TRENTAL [Suspect]
     Active Substance: PENTOXIFYLLINE
     Route: 065
  5. TADUSTA [Suspect]
     Active Substance: DUTASTERIDE\TAMSULOSIN HYDROCHLORIDE
     Dosage: 1 DF, PER DAY
     Route: 048
     Dates: start: 2021
  6. RAWEL SR [Suspect]
     Active Substance: INDAPAMIDE
     Route: 065
  7. MILURIT [Suspect]
     Active Substance: ALLOPURINOL
     Route: 065
  8. DORMICUM (MIDAZOLAM MALEATE) [Suspect]
     Active Substance: MIDAZOLAM MALEATE
     Route: 065
  9. VALSARTAN. [Suspect]
     Active Substance: VALSARTAN
     Route: 065
  10. DOXAZOSIN [Suspect]
     Active Substance: DOXAZOSIN MESYLATE
     Route: 065

REACTIONS (1)
  - Death [Fatal]

NARRATIVE: CASE EVENT DATE: 2021
